FAERS Safety Report 5870288-9 (Version None)
Quarter: 2008Q3

REPORT INFORMATION
  Report Type: 
  Country: None (occurrence: None)
  Receive Date: 20080904
  Receipt Date: 20070822
  Transmission Date: 20090109
  Serious: No
  Sender: FDA-Public Use
  Company Number: US-BRISTOL-MYERS SQUIBB COMPANY-13884861

PATIENT
  Sex: Female
  Weight: 73 kg

DRUGS (2)
  1. DEFINITY [Suspect]
  2. DETROL LA [Concomitant]

REACTIONS (3)
  - BACK PAIN [None]
  - CHEST PAIN [None]
  - HEADACHE [None]
